FAERS Safety Report 17440764 (Version 23)
Quarter: 2025Q1

REPORT INFORMATION
  Report Type: Spontaneous
  Country: IN (occurrence: IN)
  Receive Date: 20200220
  Receipt Date: 20250321
  Transmission Date: 20250409
  Serious: Yes (Other)
  Sender: PFIZER
  Company Number: IN-PFIZER INC-2020071864

PATIENT
  Age: 70 Year
  Sex: Female
  Weight: 50.1 kg

DRUGS (11)
  1. PALBOCICLIB [Suspect]
     Active Substance: PALBOCICLIB
     Indication: Breast cancer metastatic
     Route: 048
     Dates: start: 20190730
  2. PALBOCICLIB [Suspect]
     Active Substance: PALBOCICLIB
     Dosage: 125 MG, 1X/DAY
     Route: 048
     Dates: start: 20190804
  3. PALBOCICLIB [Suspect]
     Active Substance: PALBOCICLIB
     Dosage: 125 MG, 1X/DAY
     Route: 048
  4. PALBOCICLIB [Suspect]
     Active Substance: PALBOCICLIB
     Dosage: 125 MG, 1X/DAY
     Route: 048
  5. PALBOCICLIB [Suspect]
     Active Substance: PALBOCICLIB
     Route: 048
  6. LETROZOLE [Concomitant]
     Active Substance: LETROZOLE
     Dosage: 2.5 MG, 1X/DAY
     Dates: start: 20190707
  7. CALCIUM CARBONATE\CHOLECALCIFEROL [Concomitant]
     Active Substance: CALCIUM CARBONATE\CHOLECALCIFEROL
     Dosage: 500 MG, 2X/DAY
  8. CALCIUM CARBONATE\CHOLECALCIFEROL [Concomitant]
     Active Substance: CALCIUM CARBONATE\CHOLECALCIFEROL
     Dosage: 500 MG, 1X/DAY
  9. BECOSULES [ASCORBIC ACID;BIOTIN;CALCIUM PANTOTHENATE;CYANOCOBALAMIN;FO [Concomitant]
     Dosage: UNK, 1X/DAY
  10. AMITRIPTYLINE [Concomitant]
     Active Substance: AMITRIPTYLINE
  11. DENUB [Concomitant]
     Dosage: 60 MG, EVERY 3 MONTHS

REACTIONS (9)
  - Biliary dilatation [Unknown]
  - Weight decreased [Not Recovered/Not Resolved]
  - Thyroid mass [Unknown]
  - Osteopenia [Unknown]
  - Diverticulum intestinal [Unknown]
  - Heart rate increased [Unknown]
  - Scoliosis [Unknown]
  - Dizziness [Unknown]
  - Oxygen saturation decreased [Unknown]

NARRATIVE: CASE EVENT DATE: 20200123
